FAERS Safety Report 10715611 (Version 1)
Quarter: 2014Q4

REPORT INFORMATION
  Report Type: Spontaneous
  Country: US (occurrence: None)
  Receive Date: 20141223
  Receipt Date: 20141223
  Transmission Date: 20150529
  Serious: Yes (Hospitalization)
  Sender: FDA-Public Use
  Company Number: 1446344

PATIENT
  Age: 60 Year
  Sex: Female

DRUGS (14)
  1. LIPITOR [Concomitant]
     Active Substance: ATORVASTATIN CALCIUM
  2. RAMIPRIL. [Concomitant]
     Active Substance: RAMIPRIL
  3. LASIX [Concomitant]
     Active Substance: FUROSEMIDE
  4. NASONEX [Concomitant]
     Active Substance: MOMETASONE FUROATE
  5. CELEBREX [Concomitant]
     Active Substance: CELECOXIB
  6. PLAQUENIL (HYDROXYCHLOROQUINE SULFATE) [Concomitant]
  7. FOLIC ACID. [Concomitant]
     Active Substance: FOLIC ACID
  8. ACTEMRA [Suspect]
     Active Substance: TOCILIZUMAB
     Indication: RHEUMATOID ARTHRITIS
     Route: 058
     Dates: start: 20140322
  9. SINGULAIR (MONTELUKAST SODIUM) [Concomitant]
  10. METHOTREXATE [Concomitant]
     Active Substance: METHOTREXATE
  11. ALBUTEROL  (SALBUTAMOL) [Concomitant]
     Active Substance: ALBUTEROL
  12. ZYRTEC [Concomitant]
     Active Substance: CETIRIZINE HYDROCHLORIDE
  13. CITALOPRAM (CITALOPRAM) [Concomitant]
     Active Substance: CITALOPRAM HYDROBROMIDE
  14. BABY ASPIRIN (ASPIRIN) [Concomitant]

REACTIONS (1)
  - Cellulitis [None]
